FAERS Safety Report 18540450 (Version 4)
Quarter: 2024Q3

REPORT INFORMATION
  Report Type: Spontaneous
  Country: US (occurrence: US)
  Receive Date: 20201124
  Receipt Date: 20240819
  Transmission Date: 20241016
  Serious: No
  Sender: PFIZER
  Company Number: US-PFIZER INC-2020460795

PATIENT
  Age: 69 Year
  Sex: Female

DRUGS (9)
  1. MEKTOVI [Suspect]
     Active Substance: BINIMETINIB
     Indication: Malignant melanoma
     Dosage: 45 MG, 2X/DAY
     Route: 048
     Dates: start: 20201027, end: 20201027
  2. MEKTOVI [Suspect]
     Active Substance: BINIMETINIB
     Indication: Metastases to liver
     Dosage: UNK, CYCLIC (NOW THREE WEEKS ON 1 WEEK OFF)
     Route: 048
  3. MEKTOVI [Suspect]
     Active Substance: BINIMETINIB
     Indication: Cholangiocarcinoma
     Dosage: 45 MG, 2X/DAY (TAKE 45 MG TOTAL BY MOUTH TWICE DAILY)
     Route: 048
  4. MEKTOVI [Suspect]
     Active Substance: BINIMETINIB
     Dosage: UNK
     Route: 048
     Dates: end: 202306
  5. BRAFTOVI [Suspect]
     Active Substance: ENCORAFENIB
     Indication: Malignant melanoma
     Dosage: 450 MG, DAILY (180CT 450 MG PO (BY MOUTH)DAILY)
     Route: 048
     Dates: start: 20201027
  6. BRAFTOVI [Suspect]
     Active Substance: ENCORAFENIB
     Indication: Metastases to liver
     Dosage: UNK, CYCLIC (NOW THREE WEEKS ON 1 WEEK OFF)
     Route: 048
  7. BRAFTOVI [Suspect]
     Active Substance: ENCORAFENIB
     Indication: Cholangiocarcinoma
     Dosage: 450 MG, 1X/DAY (TAKE 450 MG BY MOUTH ONCE DAILY)
     Route: 048
  8. BRAFTOVI [Suspect]
     Active Substance: ENCORAFENIB
     Dosage: UNK
     Route: 048
     Dates: end: 202306
  9. NEURONTIN [Concomitant]
     Active Substance: GABAPENTIN
     Dosage: UNK, 1X/DAY (TAKE 1 TO 2 CAPSULES BY MOUTH AT BEDTIME)
     Route: 048

REACTIONS (5)
  - Decreased appetite [Unknown]
  - Vomiting [Unknown]
  - Abdominal discomfort [Unknown]
  - Fatigue [Unknown]
  - Off label use [Unknown]
